FAERS Safety Report 8934962 (Version 2)
Quarter: 2012Q4

REPORT INFORMATION
  Report Type: 
  Country: DE (occurrence: FR)
  Receive Date: 20121129
  Receipt Date: 20121205
  Transmission Date: 20130627
  Serious: Yes (Life-Threatening, Hospitalization)
  Sender: FDA-Public Use
  Company Number: FR-BRISTOL-MYERS SQUIBB COMPANY-17161977

PATIENT
  Age: 64 Year
  Sex: Male

DRUGS (1)
  1. ERBITUX SOLN FOR INF [Suspect]
     Indication: OROPHARYNGEAL CANCER STAGE III
     Route: 042
     Dates: start: 20121017, end: 20121017

REACTIONS (1)
  - Cardio-respiratory arrest [Recovered/Resolved]
